FAERS Safety Report 18256449 (Version 2)
Quarter: 2020Q3

REPORT INFORMATION
  Report Type: Spontaneous
  Country: US (occurrence: US)
  Receive Date: 20200911
  Receipt Date: 20200914
  Transmission Date: 20201103
  Serious: No
  Sender: FDA-Public Use
  Company Number: US-BRISTOL-MYERS SQUIBB COMPANY-BMS-2020-074273

PATIENT
  Sex: Female

DRUGS (1)
  1. SPRYCEL [Suspect]
     Active Substance: DASATINIB
     Indication: CHRONIC LEUKAEMIA
     Dosage: (70 MILLIGRAM) 1 TABLET DAILY FOR 2 DAYS ON 1 DAY OFF AND REPEAT
     Route: 048
     Dates: start: 201410

REACTIONS (2)
  - Off label use [Unknown]
  - Fall [Unknown]
